FAERS Safety Report 6818445-9 (Version None)
Quarter: 2010Q3

REPORT INFORMATION
  Report Type: 
  Country: None (occurrence: None)
  Receive Date: 20100706
  Receipt Date: 20080714
  Transmission Date: 20110219
  Serious: No
  Sender: FDA-Public Use
  Company Number: US-PFIZER INC-2008059157

PATIENT
  Sex: Male
  Weight: 86.18 kg

DRUGS (3)
  1. ZITHROMAX [Suspect]
     Indication: INFECTION
     Dates: start: 20080702, end: 20080704
  2. PREVACID [Concomitant]
  3. NASACORT [Concomitant]

REACTIONS (2)
  - EYE DISCHARGE [None]
  - URTICARIA [None]
